FAERS Safety Report 9980417 (Version 1)
Quarter: 2014Q1

REPORT INFORMATION
  Report Type: Report from Study
  Country: US (occurrence: US)
  Receive Date: 20140307
  Receipt Date: 20140307
  Transmission Date: 20141002
  Serious: No
  Sender: FDA-Public Use
  Company Number: US-ABBVIE-13P-163-1175147-00

PATIENT
  Age: 51 Year
  Sex: Female

DRUGS (6)
  1. HUMIRA [Suspect]
     Indication: CROHN^S DISEASE
     Dates: start: 20131123
  2. SYMBICORT [Concomitant]
     Indication: DYSPNOEA
     Route: 055
  3. NORCO [Concomitant]
     Indication: PAIN
  4. AMBIEN [Concomitant]
     Indication: SLEEP DISORDER
     Dosage: AT NIGHT
  5. XANAX [Concomitant]
     Indication: ANXIETY
  6. PRANDIN [Concomitant]
     Indication: DIABETES MELLITUS

REACTIONS (4)
  - Injection site pain [Recovering/Resolving]
  - Headache [Unknown]
  - Incorrect route of drug administration [Unknown]
  - Drug administered at inappropriate site [Unknown]
